FAERS Safety Report 13429934 (Version 3)
Quarter: 2019Q1

REPORT INFORMATION
  Report Type: Report from Study
  Country: DK (occurrence: DK)
  Receive Date: 20170412
  Receipt Date: 20190128
  Transmission Date: 20190417
  Serious: Yes (Other)
  Sender: FDA-Public Use
  Company Number: DK-ROCHE-1890375

PATIENT

DRUGS (4)
  1. ETOPOSIDE. [Suspect]
     Active Substance: ETOPOSIDE
     Indication: NON-HODGKIN^S LYMPHOMA
     Route: 042
  2. PIXANTRONE [Suspect]
     Active Substance: PIXANTRONE
     Indication: NON-HODGKIN^S LYMPHOMA
     Route: 042
  3. RITUXIMAB. [Suspect]
     Active Substance: RITUXIMAB
     Indication: NON-HODGKIN^S LYMPHOMA
     Route: 042
  4. BENDAMUSTINE [Suspect]
     Active Substance: BENDAMUSTINE
     Indication: NON-HODGKIN^S LYMPHOMA
     Route: 042

REACTIONS (12)
  - Anaemia [Unknown]
  - Thrombocytopenia [Unknown]
  - Neutropenic infection [Unknown]
  - Pyrexia [Unknown]
  - Febrile neutropenia [Unknown]
  - Sepsis [Unknown]
  - Respiratory tract infection [Unknown]
  - Neutropenia [Unknown]
  - Troponin T increased [Unknown]
  - Pneumonia [Unknown]
  - Sinusitis [Unknown]
  - Infection [Unknown]
